FAERS Safety Report 19593265 (Version 1)
Quarter: 2021Q3

REPORT INFORMATION
  Report Type: Spontaneous
  Country: US (occurrence: US)
  Receive Date: 20210721
  Receipt Date: 20210721
  Transmission Date: 20211014
  Serious: Yes (Hospitalization)
  Sender: FDA-Public Use
  Company Number: None

PATIENT
  Age: 61 Year
  Sex: Male

DRUGS (5)
  1. ELIQUIS [Concomitant]
     Active Substance: APIXABAN
  2. ASPIRIN EC [Concomitant]
     Active Substance: ASPIRIN
  3. XALKORI [Suspect]
     Active Substance: CRIZOTINIB
     Indication: LUNG NEOPLASM MALIGNANT
     Dosage: 1 CAP BID PO
     Route: 048
     Dates: start: 20210604
  4. LEVETIRACETA [Concomitant]
     Active Substance: LEVETIRACETAM
  5. MEMANTINE HC ER [Concomitant]

REACTIONS (2)
  - Diabetes mellitus [None]
  - Peripheral swelling [None]

NARRATIVE: CASE EVENT DATE: 20210708
